FAERS Safety Report 10395786 (Version 1)
Quarter: 2014Q3

REPORT INFORMATION
  Report Type: Spontaneous
  Country: US (occurrence: None)
  Receive Date: 20140818
  Receipt Date: 20140818
  Transmission Date: 20150326
  Serious: Yes (Other)
  Sender: FDA-Public Use
  Company Number: SYM-2014-24044

PATIENT
  Age: 19 Year
  Sex: Female

DRUGS (5)
  1. METRONIDAZOLE. [Suspect]
     Active Substance: METRONIDAZOLE
     Indication: PELVIC INFLAMMATORY DISEASE
     Dosage: 800 MG, 2 IN 1 D, ORAL
     Route: 048
     Dates: start: 20140624, end: 20140701
  2. CEFTRIAXONE (CEFTRIAXONE) [Concomitant]
     Active Substance: CEFTRIAXONE
  3. AZITHROMYCIN [Concomitant]
     Active Substance: AZITHROMYCIN ANHYDROUS
  4. DOXYCYCLINE. [Suspect]
     Active Substance: DOXYCYCLINE
     Indication: PELVIC INFLAMMATORY DISEASE
     Dosage: 200 MG, 2 IN 1 D, ORAL
     Route: 048
     Dates: start: 20140624, end: 20140701
  5. LIDOCAINE (LIDOCAINE) [Concomitant]
     Active Substance: LIDOCAINE

REACTIONS (5)
  - Tachycardia [None]
  - Nausea [None]
  - Dizziness [None]
  - Hot flush [None]
  - Rash [None]
